FAERS Safety Report 16184456 (Version 3)
Quarter: 2019Q3

REPORT INFORMATION
  Report Type: Spontaneous
  Country: CO (occurrence: CO)
  Receive Date: 20190411
  Receipt Date: 20190924
  Transmission Date: 20191004
  Serious: Yes (Hospitalization, Other)
  Sender: FDA-Public Use
  Company Number: CO-AMGEN-COLSP2018056841

PATIENT
  Age: 56 Year
  Sex: Female

DRUGS (3)
  1. ENBREL [Suspect]
     Active Substance: ETANERCEPT
     Indication: ANKYLOSING SPONDYLITIS
     Dosage: 50 MILLIGRAM, QWK
     Route: 058
     Dates: start: 2013
  2. ENBREL [Suspect]
     Active Substance: ETANERCEPT
     Dosage: 50 MILLIGRAM, QWK
     Route: 058
     Dates: start: 2015
  3. ENBREL [Suspect]
     Active Substance: ETANERCEPT
     Dosage: 50 MILLIGRAM
     Route: 058
     Dates: end: 20181122

REACTIONS (6)
  - Cholelithiasis [Recovering/Resolving]
  - Pyrexia [Recovered/Resolved]
  - Influenza [Recovered/Resolved]
  - Pancreatitis [Recovered/Resolved]
  - Hepatic steatosis [Recovered/Resolved]
  - Hepatitis viral [Recovered/Resolved]

NARRATIVE: CASE EVENT DATE: 201802
